FAERS Safety Report 15025254 (Version 1)
Quarter: 2018Q2

REPORT INFORMATION
  Report Type: Report from Study
  Country: CO (occurrence: CO)
  Receive Date: 20180618
  Receipt Date: 20180618
  Transmission Date: 20180711
  Serious: Yes (Hospitalization, Other)
  Sender: FDA-Public Use
  Company Number: CO-ACTELION-A-US2018-174072

PATIENT
  Age: 50 Year
  Sex: Female

DRUGS (8)
  1. NEBIVOLOL. [Concomitant]
     Active Substance: NEBIVOLOL
  2. COUMADIN [Concomitant]
     Active Substance: WARFARIN SODIUM
  3. SPIRONOLACTONE. [Concomitant]
     Active Substance: SPIRONOLACTONE
  4. AMIODARONE [Concomitant]
     Active Substance: AMIODARONE
  5. VENTAVIS [Suspect]
     Active Substance: ILOPROST
     Indication: PULMONARY ARTERIAL HYPERTENSION
     Dosage: 6 DF, UNK
     Route: 055
     Dates: start: 20090901
  6. OXYGEN. [Concomitant]
     Active Substance: OXYGEN
  7. SILDENAFIL. [Concomitant]
     Active Substance: SILDENAFIL
  8. MACITENTAN [Concomitant]
     Active Substance: MACITENTAN

REACTIONS (2)
  - Catheterisation cardiac [Not Recovered/Not Resolved]
  - Hospitalisation [Not Recovered/Not Resolved]

NARRATIVE: CASE EVENT DATE: 20180606
